FAERS Safety Report 26103474 (Version 1)
Quarter: 2025Q4

REPORT INFORMATION
  Report Type: Spontaneous
  Country: AU (occurrence: AU)
  Receive Date: 20251129
  Receipt Date: 20251129
  Transmission Date: 20260118
  Serious: Yes (Other)
  Sender: ACCORD
  Company Number: None

PATIENT
  Age: 38 Year
  Sex: Female

DRUGS (6)
  1. QUETIAPINE FUMARATE [Suspect]
     Active Substance: QUETIAPINE FUMARATE
     Indication: Product used for unknown indication
  2. LURASIDONE [Suspect]
     Active Substance: LURASIDONE
     Indication: Product used for unknown indication
  3. ATORVASTATIN [Concomitant]
     Active Substance: ATORVASTATIN
  4. FOLIC ACID [Concomitant]
     Active Substance: FOLIC ACID
  5. LAMOTRIGINE [Concomitant]
     Active Substance: LAMOTRIGINE
  6. MAGNESIUM ASPARTATE [Concomitant]
     Active Substance: MAGNESIUM ASPARTATE

REACTIONS (13)
  - Cardiac dysfunction [Unknown]
  - Cardiogenic shock [Unknown]
  - Drug interaction [Unknown]
  - Electrocardiogram ST segment depression [Unknown]
  - Fatigue [Unknown]
  - Hypotension [Unknown]
  - Lung opacity [Unknown]
  - Metabolic acidosis [Unknown]
  - Overdose [Unknown]
  - Sinus tachycardia [Unknown]
  - Sputum purulent [Unknown]
  - Tachycardia [Unknown]
  - Unresponsive to stimuli [Unknown]
